FAERS Safety Report 13251226 (Version 1)
Quarter: 2017Q1

REPORT INFORMATION
  Report Type: Spontaneous
  Country: CA (occurrence: CA)
  Receive Date: 20170220
  Receipt Date: 20170220
  Transmission Date: 20170428
  Serious: Yes (Other)
  Sender: FDA-Public Use
  Company Number: CA-ALVOGEN-2017-ALVOGEN-091577

PATIENT
  Sex: Male

DRUGS (1)
  1. MACROBID [Suspect]
     Active Substance: NITROFURANTOIN\NITROFURANTOIN MONOHYDRATE
     Indication: URINARY TRACT INFECTION
     Dosage: UNK MG

REACTIONS (7)
  - Pruritus [Not Recovered/Not Resolved]
  - Pneumonia [Not Recovered/Not Resolved]
  - Depression [Not Recovered/Not Resolved]
  - Rales [Not Recovered/Not Resolved]
  - Asthenia [Not Recovered/Not Resolved]
  - Gait disturbance [Not Recovered/Not Resolved]
  - Balance disorder [Not Recovered/Not Resolved]
